FAERS Safety Report 17920957 (Version 1)
Quarter: 2020Q2

REPORT INFORMATION
  Report Type: Spontaneous
  Country: ES (occurrence: ES)
  Receive Date: 20200622
  Receipt Date: 20200622
  Transmission Date: 20200714
  Serious: Yes (Other)
  Sender: FDA-Public Use
  Company Number: ES-US-PROVELL PHARMACEUTICALS LLC-E2B_90078246

PATIENT
  Age: 54 Year
  Sex: Female
  Weight: 60 kg

DRUGS (1)
  1. EUTIROX [Suspect]
     Active Substance: LEVOTHYROXINE SODIUM
     Indication: THYROIDITIS
     Dosage: 1 C/24 H
     Route: 048
     Dates: start: 20180914

REACTIONS (4)
  - Syncope [Recovering/Resolving]
  - Product formulation issue [Not Recovered/Not Resolved]
  - Chest pain [Not Recovered/Not Resolved]
  - Dyspepsia [Recovering/Resolving]

NARRATIVE: CASE EVENT DATE: 20200525
